FAERS Safety Report 5443985-7 (Version None)
Quarter: 2007Q3

REPORT INFORMATION
  Report Type: 
  Country: None (occurrence: None)
  Receive Date: 20070831
  Receipt Date: 20070817
  Transmission Date: 20080115
  Serious: Yes (Death)
  Sender: FDA-Public Use
  Company Number: 2007S1007920

PATIENT
  Age: 36 Year
  Sex: Female
  Weight: 61.2356 kg

DRUGS (8)
  1. EXTENDED PHENYTOIN SODIUM [Suspect]
     Indication: CONVULSION PROPHYLAXIS
  2. CLONAZEPAM [Suspect]
     Indication: CONVULSION PROPHYLAXIS
  3. VALPROIC ACID [Suspect]
     Indication: CONVULSION PROPHYLAXIS
  4. GABAPENTIN [Suspect]
     Indication: CONVULSION PROPHYLAXIS
  5. CARBAMAZEPINE [Suspect]
     Indication: CONVULSION PROPHYLAXIS
  6. LEVETIRACETAM [Suspect]
     Indication: CONVULSION PROPHYLAXIS
  7. MYSOLINE [Suspect]
     Indication: CONVULSION PROPHYLAXIS
  8. METOCLOPRAMIDE [Suspect]

REACTIONS (22)
  - ANAEMIA [None]
  - CATATONIA [None]
  - CLOSTRIDIUM DIFFICILE COLITIS [None]
  - CONVERSION DISORDER [None]
  - CONVULSION [None]
  - HYPERCHLORAEMIA [None]
  - HYPERNATRAEMIA [None]
  - HYPERTENSION [None]
  - INJURY [None]
  - MENTAL STATUS CHANGES [None]
  - MUSCULOSKELETAL STIFFNESS [None]
  - NEUROLEPTIC MALIGNANT SYNDROME [None]
  - ORAL INTAKE REDUCED [None]
  - PSYCHOMOTOR HYPERACTIVITY [None]
  - PULMONARY OEDEMA [None]
  - RENAL FAILURE ACUTE [None]
  - RHABDOMYOLYSIS [None]
  - TACHYCARDIA [None]
  - TREMOR [None]
  - UNRESPONSIVE TO STIMULI [None]
  - URINE KETONE BODY PRESENT [None]
  - VITAMIN B12 INCREASED [None]
